FAERS Safety Report 20258596 (Version 1)
Quarter: 2021Q4

REPORT INFORMATION
  Report Type: Spontaneous
  Country: SE (occurrence: SE)
  Receive Date: 20211230
  Receipt Date: 20211230
  Transmission Date: 20220303
  Serious: Yes (Other)
  Sender: FDA-Public Use
  Company Number: None

PATIENT
  Age: 17 Year
  Sex: Male
  Weight: 89 kg

DRUGS (4)
  1. ISOTRETINOIN [Suspect]
     Active Substance: ISOTRETINOIN
     Indication: Acne
     Dosage: 3 DOSAGE FORMS DAILY; DOSAGE 3 TABLETS DAILY ,ISOTRETINOIN ACTAVIS 20 MG CAPSULE, SOFT
     Route: 048
     Dates: start: 202109, end: 20211020
  2. ISOTRETINOIN [Suspect]
     Active Substance: ISOTRETINOIN
     Dosage: 1 DOSAGE FORMS DAILY; ?DOSAGE 1 TABLET DAILY
     Route: 048
     Dates: start: 20210316, end: 202109
  3. ISOTRETINOIN [Suspect]
     Active Substance: ISOTRETINOIN
     Dosage: 2 DOSAGE FORMS DAILY; DOSAGE 2 TABLETS DAILY
     Route: 048
     Dates: start: 202106, end: 202109
  4. SERETIDE [Concomitant]
     Active Substance: FLUTICASONE PROPIONATE\SALMETEROL XINAFOATE
     Dosage: 2 DOSAGE FORMS DAILY; 50 MICROGRAMS / 500 MICROGRAMS / DOSE TWICE DAILY.  ,SERETIDE DISKUS FORTE 50
     Route: 055
     Dates: start: 2012

REACTIONS (1)
  - Sacroiliitis [Not Recovered/Not Resolved]

NARRATIVE: CASE EVENT DATE: 20211001
